FAERS Safety Report 4803328-6 (Version None)
Quarter: 2005Q4

REPORT INFORMATION
  Report Type: 
  Country: None (occurrence: None)
  Receive Date: 20051019
  Receipt Date: 20051007
  Transmission Date: 20060501
  Serious: Yes (Other)
  Sender: FDA-Public Use
  Company Number: PHBS2005JP14955

PATIENT

DRUGS (1)
  1. SLOW-K [Suspect]
     Route: 048

REACTIONS (1)
  - DIVERTICULITIS [None]
